FAERS Safety Report 21777895 (Version 9)
Quarter: 2025Q3

REPORT INFORMATION
  Report Type: Report from Study
  Country: CA (occurrence: CA)
  Receive Date: 20221226
  Receipt Date: 20250926
  Transmission Date: 20251021
  Serious: Yes (Other)
  Sender: TAKEDA
  Company Number: CA-TAKEDA-2022TUS013785

PATIENT
  Age: 53 Year
  Sex: Female

DRUGS (22)
  1. VEDOLIZUMAB [Suspect]
     Active Substance: VEDOLIZUMAB
     Indication: Crohn^s disease
  2. VEDOLIZUMAB [Suspect]
     Active Substance: VEDOLIZUMAB
  3. VEDOLIZUMAB [Suspect]
     Active Substance: VEDOLIZUMAB
     Dosage: 300 MILLIGRAM, Q4WEEKS
     Dates: start: 20230203
  4. VEDOLIZUMAB [Suspect]
     Active Substance: VEDOLIZUMAB
     Dosage: 300 MILLIGRAM, Q4WEEKS
     Dates: start: 20230203
  5. VEDOLIZUMAB [Suspect]
     Active Substance: VEDOLIZUMAB
     Dosage: 300 MILLIGRAM, Q4WEEKS
  6. VEDOLIZUMAB [Suspect]
     Active Substance: VEDOLIZUMAB
     Dosage: 300 MILLIGRAM, Q4WEEKS
  7. VEDOLIZUMAB [Suspect]
     Active Substance: VEDOLIZUMAB
     Dosage: 300 MILLIGRAM, Q4WEEKS
  8. VEDOLIZUMAB [Suspect]
     Active Substance: VEDOLIZUMAB
     Dosage: 300 MILLIGRAM, Q4WEEKS
  9. VEDOLIZUMAB [Suspect]
     Active Substance: VEDOLIZUMAB
     Indication: Crohn^s disease
     Dosage: 108 MILLIGRAM, 1/WEEK
     Dates: start: 20250327
  10. INSULIN NOS [Concomitant]
     Active Substance: INSULIN NOS
  11. METAMUCIL [Concomitant]
     Active Substance: PLANTAGO SEED
  12. OZEMPIC [Concomitant]
     Active Substance: SEMAGLUTIDE
  13. IMODIUM [Concomitant]
     Active Substance: LOPERAMIDE HYDROCHLORIDE
  14. B12 [Concomitant]
  15. PREGABALIN [Concomitant]
     Active Substance: PREGABALIN
  16. RAMIPRIL [Concomitant]
     Active Substance: RAMIPRIL
  17. CHOLESTYRAMINE [Concomitant]
     Active Substance: CHOLESTYRAMINE
  18. BENADRYL [Concomitant]
     Active Substance: DIPHENHYDRAMINE HYDROCHLORIDE
     Indication: Pruritus
  19. CYMBALTA [Concomitant]
     Active Substance: DULOXETINE HYDROCHLORIDE
  20. GLUCOPHAGE [Concomitant]
     Active Substance: METFORMIN HYDROCHLORIDE
     Dosage: 1000 MILLIGRAM, BID
  21. PREDNISONE [Concomitant]
     Active Substance: PREDNISONE
  22. ALTACE [Concomitant]
     Active Substance: RAMIPRIL
     Dosage: 10 MILLIGRAM, QD

REACTIONS (18)
  - Renal impairment [Unknown]
  - Intestinal fistula [Unknown]
  - Intestinal stenosis [Unknown]
  - Crohn^s disease [Unknown]
  - Anorectal polyp [Unknown]
  - Abdominal mass [Unknown]
  - Off label use [Unknown]
  - Bile acid malabsorption [Unknown]
  - Vitamin B12 decreased [Unknown]
  - Therapeutic reaction time decreased [Unknown]
  - Hepatic steatosis [Unknown]
  - Pulmonary granuloma [Unknown]
  - Renal cyst [Unknown]
  - Abdominal adhesions [Unknown]
  - Abdominal pain [Unknown]
  - Discomfort [Unknown]
  - Abdominal distension [Unknown]
  - Constipation [Unknown]

NARRATIVE: CASE EVENT DATE: 20230203
